FAERS Safety Report 14636347 (Version 2)
Quarter: 2018Q1

REPORT INFORMATION
  Report Type: Report from Study
  Country: TW (occurrence: TW)
  Receive Date: 20180314
  Receipt Date: 20180326
  Transmission Date: 20180509
  Serious: Yes (Hospitalization)
  Sender: FDA-Public Use
  Company Number: TW-INCYTE CORPORATION-2018IN002208

PATIENT

DRUGS (8)
  1. JAKAVI [Suspect]
     Active Substance: RUXOLITINIB
     Indication: MYELOFIBROSIS
     Dosage: 10 MG, QD
     Route: 048
     Dates: start: 20170623, end: 20170717
  2. JAKAVI [Suspect]
     Active Substance: RUXOLITINIB
     Dosage: 5 MG, BID
     Route: 048
     Dates: start: 20180302
  3. REGROW [Concomitant]
     Indication: PNEUMONIA CRYPTOCOCCAL
     Dosage: 60 MG, UNK
     Route: 065
     Dates: start: 20180209, end: 20180304
  4. JAKAVI [Suspect]
     Active Substance: RUXOLITINIB
     Dosage: 20 MG, QD
     Route: 048
     Dates: start: 20170718, end: 20170728
  5. CRAVIT [Concomitant]
     Active Substance: LEVOFLOXACIN
     Indication: PNEUMONIA CRYPTOCOCCAL
     Dosage: 750 MG, UNK
     Route: 065
     Dates: start: 20180223, end: 20180225
  6. AMPICILLIN AND SULBACTAM [Concomitant]
     Active Substance: AMPICILLIN SODIUM\SULBACTAM SODIUM
     Indication: PNEUMONIA CRYPTOCOCCAL
     Dosage: 2000 MG, UNK
     Route: 065
     Dates: start: 20180226, end: 20180226
  7. ZITHROMAX [Concomitant]
     Active Substance: AZITHROMYCIN DIHYDRATE
     Indication: PNEUMONIA CRYPTOCOCCAL
     Dosage: 500 MG, UNK
     Route: 065
     Dates: start: 20180209, end: 20180226
  8. JAKAVI [Suspect]
     Active Substance: RUXOLITINIB
     Dosage: 30 MG, QD
     Route: 048
     Dates: start: 20170729, end: 20180302

REACTIONS (2)
  - Cough [Not Recovered/Not Resolved]
  - Pneumonia cryptococcal [Recovered/Resolved with Sequelae]

NARRATIVE: CASE EVENT DATE: 20180209
